FAERS Safety Report 8276082-6 (Version None)
Quarter: 2012Q2

REPORT INFORMATION
  Report Type: 
  Country: None (occurrence: None)
  Receive Date: 20120412
  Receipt Date: 20120329
  Transmission Date: 20120825
  Serious: Yes (Other)
  Sender: FDA-Public Use
  Company Number: US-MYLANLABS-2012S1007031

PATIENT
  Age: 3 Decade
  Sex: Male

DRUGS (3)
  1. ATENOLOL [Concomitant]
     Indication: TACHYCARDIA
     Route: 065
  2. CLOZAPINE [Suspect]
     Dosage: 100 MG/DAY
     Route: 065
  3. PROPRANOLOL [Concomitant]
     Indication: TACHYCARDIA
     Route: 065

REACTIONS (5)
  - LIPASE INCREASED [None]
  - EOSINOPHILIA [None]
  - PYREXIA [None]
  - TACHYCARDIA [None]
  - ENURESIS [None]
